FAERS Safety Report 7268583-4 (Version None)
Quarter: 2011Q1

REPORT INFORMATION
  Report Type: 
  Country: None (occurrence: None)
  Receive Date: 20110201
  Receipt Date: 20101215
  Transmission Date: 20110831
  Serious: Yes (Death, Other)
  Sender: FDA-Public Use
  Company Number: US-BAYER-201022964NA

PATIENT
  Sex: Female
  Weight: 61.224 kg

DRUGS (6)
  1. PROPRANOLOL [Concomitant]
     Indication: ARRHYTHMIA
  2. ANTIBIOTICS [Concomitant]
     Dosage: UNK UNK, PRN
  3. LEXAPRO [Concomitant]
     Indication: ANXIETY
     Dosage: UNK UNK, CONT
     Dates: start: 20070101, end: 20080101
  4. YAZ [Suspect]
     Indication: PRODUCT USED FOR UNKNOWN INDICATION
     Dates: end: 20080208
  5. YASMIN [Suspect]
     Indication: PREMENSTRUAL SYNDROME
     Dosage: UNK
     Dates: start: 20040813, end: 20080208
  6. PROPRANOLOL [Concomitant]
     Indication: HEART RATE IRREGULAR
     Dosage: UNK
     Dates: start: 19960101, end: 20080101

REACTIONS (1)
  - PULMONARY EMBOLISM [None]
